FAERS Safety Report 7064514-0 (Version None)
Quarter: 2010Q4

REPORT INFORMATION
  Report Type: 
  Country: None (occurrence: None)
  Receive Date: 20101027
  Receipt Date: 20101021
  Transmission Date: 20110411
  Serious: Yes (Other)
  Sender: FDA-Public Use
  Company Number: CA-PFIZER INC-2010121055

PATIENT
  Age: 55 Year
  Sex: Male
  Weight: 88 kg

DRUGS (5)
  1. CELEBREX [Suspect]
     Indication: PERIOPERATIVE ANALGESIA
     Dosage: 200 MG, 2X/DAY
     Route: 048
     Dates: start: 20100917
  2. CELEBREX [Suspect]
     Indication: PAIN
  3. PREGABALIN [Concomitant]
     Indication: PROCEDURAL PAIN
     Dosage: 50 MG, 3X/DAY
     Route: 048
     Dates: start: 20100917, end: 20100922
  4. ACETAMINOPHEN [Concomitant]
     Indication: PROCEDURAL PAIN
     Dosage: 650 MG, 3X/DAY
     Route: 048
     Dates: start: 20100917, end: 20100930
  5. TRAMADOL HYDROCHLORIDE AND ACETAMINOPHEN [Concomitant]
     Indication: PROCEDURAL PAIN
     Dosage: 1 TO 2 TABLETS EVERY 6 HOURS AS NEEDED
     Route: 048
     Dates: start: 20100917, end: 20100921

REACTIONS (3)
  - FLUID RETENTION [None]
  - HYPERNATRAEMIA [None]
  - WEIGHT INCREASED [None]
